FAERS Safety Report 20336749 (Version 2)
Quarter: 2022Q1

REPORT INFORMATION
  Report Type: Spontaneous
  Country: US (occurrence: US)
  Receive Date: 20220114
  Receipt Date: 20220118
  Transmission Date: 20220424
  Serious: Yes (Other)
  Sender: FDA-Public Use
  Company Number: US-JNJFOC-20220117530

PATIENT
  Age: 6 Decade
  Sex: Male

DRUGS (7)
  1. SPRAVATO [Suspect]
     Active Substance: ESKETAMINE
     Indication: Depression
     Dosage: 1 DOSE
     Dates: start: 20200313, end: 20200313
  2. SPRAVATO [Suspect]
     Active Substance: ESKETAMINE
     Dosage: ONE DOSE
     Dates: start: 20200630, end: 20200630
  3. SPRAVATO [Suspect]
     Active Substance: ESKETAMINE
     Dosage: 1 DOSE
     Dates: start: 20200702, end: 20200702
  4. SPRAVATO [Suspect]
     Active Substance: ESKETAMINE
     Dosage: 3 DOSES
     Dates: start: 20200714, end: 20200728
  5. SPRAVATO [Suspect]
     Active Substance: ESKETAMINE
     Dosage: 1 DOSE
     Dates: start: 20200804, end: 20200804
  6. SPRAVATO [Suspect]
     Active Substance: ESKETAMINE
     Dosage: 94 DOSES
     Dates: start: 20200806, end: 20211223
  7. SPRAVATO [Suspect]
     Active Substance: ESKETAMINE

REACTIONS (1)
  - Suicidal ideation [Not Recovered/Not Resolved]
